FAERS Safety Report 9048928 (Version 1)
Quarter: 2013Q1

REPORT INFORMATION
  Report Type: Spontaneous
  Country: US (occurrence: None)
  Receive Date: 20130130
  Receipt Date: 20130130
  Transmission Date: 20140127
  Serious: Yes (Hospitalization, Other)
  Sender: FDA-Public Use
  Company Number: None

PATIENT
  Age: 82 Year
  Sex: Female
  Weight: 60.5 kg

DRUGS (1)
  1. AZITHROMYCIN [Suspect]
     Indication: COUGH
     Dosage: ONCE DAILY
     Route: 048
     Dates: start: 20130101, end: 20130104

REACTIONS (4)
  - Hallucination, auditory [None]
  - Decreased appetite [None]
  - Chromaturia [None]
  - Fatigue [None]
